FAERS Safety Report 18960157 (Version 2)
Quarter: 2021Q2

REPORT INFORMATION
  Report Type: Report from Study
  Country: FI (occurrence: FI)
  Receive Date: 20210302
  Receipt Date: 20210406
  Transmission Date: 20210717
  Serious: Yes (Other)
  Sender: FDA-Public Use
  Company Number: FI-MYLANLABS-2021M1012038

PATIENT
  Age: 78 Year
  Sex: Female

DRUGS (7)
  1. NIFEDIPINE. [Concomitant]
     Active Substance: NIFEDIPINE
     Dosage: UNK
  2. PARACETAMOL [Concomitant]
     Active Substance: ACETAMINOPHEN
     Dosage: UNK
  3. LEPONEX [Suspect]
     Active Substance: CLOZAPINE
     Indication: DELUSIONAL DISORDER, UNSPECIFIED TYPE
     Dosage: 150 MG ? 200 MG
     Dates: start: 202101
  4. METOPROLOL. [Concomitant]
     Active Substance: METOPROLOL
     Dosage: 160 MILLIGRAM, QD
  5. SERTRALINE [Concomitant]
     Active Substance: SERTRALINE HYDROCHLORIDE
     Dosage: 100 MILLIGRAM, QD
     Dates: start: 2020
  6. LEPONEX [Suspect]
     Active Substance: CLOZAPINE
     Dosage: DOSE INCREASED BY ADDING 12.5 MG TWICE A WEEK
     Dates: start: 2021, end: 2021
  7. LEPONEX [Suspect]
     Active Substance: CLOZAPINE
     Dosage: DOSE INCREASED BY ADDING 25 MG AT A TIME TWICE A WEEK
     Dates: start: 2021

REACTIONS (3)
  - Electrocardiogram QRS complex shortened [Unknown]
  - Electrocardiogram PR prolongation [Recovered/Resolved]
  - Off label use [Not Recovered/Not Resolved]

NARRATIVE: CASE EVENT DATE: 2021
